FAERS Safety Report 7534883-3 (Version None)
Quarter: 2011Q2

REPORT INFORMATION
  Report Type: 
  Country: None (occurrence: None)
  Receive Date: 20110609
  Receipt Date: 20081119
  Transmission Date: 20111010
  Serious: Yes (Hospitalization, Other)
  Sender: FDA-Public Use
  Company Number: PHHO2004CA12310

PATIENT
  Sex: Male

DRUGS (5)
  1. SERAX [Concomitant]
  2. CLOZARIL [Suspect]
     Dosage: 150 MG
     Route: 048
     Dates: start: 20040706
  3. DILTIAZEM [Concomitant]
  4. SEROQUEL [Concomitant]
  5. CLOZARIL [Suspect]
     Dosage: 200 MG
     Route: 048
     Dates: start: 20040901, end: 20070201

REACTIONS (7)
  - CONFUSIONAL STATE [None]
  - DIZZINESS [None]
  - DYSARTHRIA [None]
  - NAUSEA [None]
  - DEPRESSED LEVEL OF CONSCIOUSNESS [None]
  - CEREBROVASCULAR ACCIDENT [None]
  - FALL [None]
